FAERS Safety Report 7579760-7 (Version None)
Quarter: 2011Q2

REPORT INFORMATION
  Report Type: 
  Country: None (occurrence: None)
  Receive Date: 20110623
  Receipt Date: 20110613
  Transmission Date: 20111010
  Serious: Yes (Hospitalization)
  Sender: FDA-Public Use
  Company Number: PIR#CC400102350

PATIENT
  Age: 54 Year
  Sex: Female

DRUGS (1)
  1. DEXTROSE 10% [Suspect]

REACTIONS (4)
  - RESPIRATORY ARREST [None]
  - CYANOSIS [None]
  - LOSS OF CONSCIOUSNESS [None]
  - PULSE ABSENT [None]
